FAERS Safety Report 20937403 (Version 1)
Quarter: 2022Q2

REPORT INFORMATION
  Report Type: Spontaneous
  Country: GB (occurrence: GB)
  Receive Date: 20220609
  Receipt Date: 20220609
  Transmission Date: 20220721
  Serious: Yes (Other)
  Sender: FDA-Public Use
  Company Number: GB-MHRA-MED-202205241707513950-M5V1V

PATIENT
  Age: 36 Year
  Sex: Female
  Weight: 115 kg

DRUGS (1)
  1. SERTRALINE [Suspect]
     Active Substance: SERTRALINE HYDROCHLORIDE
     Indication: Product used for unknown indication
     Dosage: UNK
     Route: 065
     Dates: start: 20200801

REACTIONS (1)
  - Sunburn [Recovered/Resolved with Sequelae]

NARRATIVE: CASE EVENT DATE: 20220511
